FAERS Safety Report 16200502 (Version 1)
Quarter: 2019Q2

REPORT INFORMATION
  Report Type: Spontaneous
  Country: GB (occurrence: GB)
  Receive Date: 20190416
  Receipt Date: 20190416
  Transmission Date: 20190711
  Serious: Yes (Hospitalization)
  Sender: FDA-Public Use
  Company Number: GB-TEVA-2019-GB-1037379

PATIENT
  Age: 59 Year
  Sex: Female
  Weight: 80.29 kg

DRUGS (19)
  1. VINCRISTINE [Suspect]
     Active Substance: VINCRISTINE
     Indication: DIFFUSE LARGE B-CELL LYMPHOMA
     Route: 042
     Dates: start: 20190215, end: 20190215
  2. SALBUTAMOL [Concomitant]
     Active Substance: ALBUTEROL
  3. CO-AMOXICLAV [Concomitant]
     Active Substance: AMOXICILLIN\CLAVULANATE POTASSIUM
  4. IBUPROFEN. [Concomitant]
     Active Substance: IBUPROFEN
  5. PREDNISOLONE. [Concomitant]
     Active Substance: PREDNISOLONE
  6. ACICLOVIR [Concomitant]
     Active Substance: ACYCLOVIR
  7. ONDANSETRON [Concomitant]
     Active Substance: ONDANSETRON
  8. COTRIMOXAZOLE [Concomitant]
     Active Substance: SULFAMETHOXAZOLE\TRIMETHOPRIM
  9. ENOXAPARIN [Concomitant]
     Active Substance: ENOXAPARIN
  10. SIMVASTATIN. [Concomitant]
     Active Substance: SIMVASTATIN
  11. TIOTROPIUM [Concomitant]
     Active Substance: TIOTROPIUM
  12. OMEPRAZOLE. [Concomitant]
     Active Substance: OMEPRAZOLE
  13. DOXORUBICIN [Suspect]
     Active Substance: DOXORUBICIN
     Indication: DIFFUSE LARGE B-CELL LYMPHOMA
     Route: 042
     Dates: start: 20190215, end: 20190215
  14. MEROPENEM. [Concomitant]
     Active Substance: MEROPENEM
  15. RITUXIMAB. [Concomitant]
     Active Substance: RITUXIMAB
  16. PARACETAMOL [Concomitant]
     Active Substance: ACETAMINOPHEN
  17. CYCLOPHOSPHAMIDE. [Suspect]
     Active Substance: CYCLOPHOSPHAMIDE
     Indication: DIFFUSE LARGE B-CELL LYMPHOMA
     Route: 042
     Dates: start: 20190215, end: 20190215
  18. FILGRASTIM [Concomitant]
     Active Substance: FILGRASTIM
  19. METOCLOPRAMIDE. [Concomitant]
     Active Substance: METOCLOPRAMIDE

REACTIONS (4)
  - Nasal congestion [Unknown]
  - Febrile neutropenia [Recovered/Resolved]
  - Pyrexia [Recovered/Resolved]
  - Rhinitis [Unknown]

NARRATIVE: CASE EVENT DATE: 20190312
